FAERS Safety Report 15313998 (Version 1)
Quarter: 2018Q3

REPORT INFORMATION
  Report Type: Report from Study
  Country: None (occurrence: DE)
  Receive Date: 20180824
  Receipt Date: 20180824
  Transmission Date: 20181010
  Serious: Yes (Hospitalization)
  Sender: FDA-Public Use
  Company Number: DE-ABBVIE-18K-062-2456964-00

PATIENT
  Age: 44 Year

DRUGS (2)
  1. HUMIRA [Suspect]
     Active Substance: ADALIMUMAB
     Indication: PSORIATIC ARTHROPATHY
  2. HUMIRA [Suspect]
     Active Substance: ADALIMUMAB
     Indication: PSORIASIS
     Route: 058
     Dates: start: 20111004

REACTIONS (10)
  - Road traffic accident [Recovered/Resolved]
  - Skin abrasion [Recovering/Resolving]
  - Painful respiration [Not Recovered/Not Resolved]
  - Headache [Recovering/Resolving]
  - Musculoskeletal chest pain [Recovered/Resolved]
  - Contusion [Recovered/Resolved]
  - Cough [Not Recovered/Not Resolved]
  - Abdominal pain [Recovering/Resolving]
  - Chest pain [Not Recovered/Not Resolved]
  - Haematoma [Not Recovered/Not Resolved]

NARRATIVE: CASE EVENT DATE: 20170612
